FAERS Safety Report 5563690-6 (Version None)
Quarter: 2007Q4

REPORT INFORMATION
  Report Type: 
  Country: None (occurrence: None)
  Receive Date: 20071217
  Receipt Date: 20070724
  Transmission Date: 20080405
  Serious: No
  Sender: FDA-Public Use
  Company Number: US-ASTRAZENECA-2007UW17962

PATIENT
  Age: 58 Year
  Sex: Female
  Weight: 73 kg

DRUGS (2)
  1. CRESTOR [Suspect]
     Indication: BLOOD CHOLESTEROL INCREASED
     Route: 048
  2. VITAMINS [Concomitant]

REACTIONS (7)
  - DIZZINESS [None]
  - DRY EYE [None]
  - DRY THROAT [None]
  - FATIGUE [None]
  - FEELING ABNORMAL [None]
  - FEELING JITTERY [None]
  - HEADACHE [None]
